FAERS Safety Report 7002544-5 (Version None)
Quarter: 2010Q3

REPORT INFORMATION
  Report Type: 
  Country: None (occurrence: None)
  Receive Date: 20100920
  Receipt Date: 20100325
  Transmission Date: 20110219
  Serious: No
  Sender: FDA-Public Use
  Company Number: US-ASTRAZENECA-2010SE13346

PATIENT
  Age: 10 Year
  Sex: Male
  Weight: 25.4 kg

DRUGS (3)
  1. SEROQUEL [Suspect]
     Indication: AUTISM SPECTRUM DISORDER
     Dosage: TOTAL DAILY DOSE 50 MG: 25 MG AT THE MORNING AND 25 MG IN THE EVENING
     Route: 048
  2. CLONIDINE [Concomitant]
     Indication: TENSION
  3. FOCALIN [Concomitant]
     Indication: ADJUVANT THERAPY

REACTIONS (1)
  - TIC [None]
